FAERS Safety Report 9860501 (Version 1)
Quarter: 2014Q1

REPORT INFORMATION
  Report Type: Spontaneous
  Country: US (occurrence: US)
  Receive Date: 20140202
  Receipt Date: 20140202
  Transmission Date: 20141002
  Serious: Yes (Death, Other)
  Sender: FDA-Public Use
  Company Number: CHPA2014US001629

PATIENT
  Age: 54 Year
  Sex: Female

DRUGS (9)
  1. DIPHENHYDRAMINE [Suspect]
     Route: 048
  2. HYDROCODONE/PARACETAMOL [Suspect]
     Route: 048
  3. MUSCLE RELAXANTS [Suspect]
     Route: 048
  4. VENLAFAXINE [Suspect]
     Route: 048
  5. MORPHINE [Suspect]
     Route: 048
  6. QUETIAPINE [Suspect]
     Route: 048
  7. ALPRAZOLAM [Suspect]
     Route: 048
  8. LAMOTRIGINE [Suspect]
     Route: 048
  9. GABAPENTIN [Suspect]
     Route: 048

REACTIONS (2)
  - Completed suicide [Fatal]
  - Cardio-respiratory arrest [Unknown]
